FAERS Safety Report 17291881 (Version 1)
Quarter: 2020Q1

REPORT INFORMATION
  Report Type: Spontaneous
  Country: US (occurrence: US)
  Receive Date: 20200118
  Receipt Date: 20200118
  Transmission Date: 20200409
  Serious: Yes (Disabling)
  Sender: FDA-Public Use
  Company Number: None

PATIENT
  Age: 78 Year
  Sex: Female
  Weight: 60.75 kg

DRUGS (1)
  1. PROLIA [Suspect]
     Active Substance: DENOSUMAB
     Indication: OSTEOPENIA
     Dosage: ?          OTHER FREQUENCY:EVERY 6 MONTHS;?
     Route: 058
     Dates: start: 20130301, end: 20190601

REACTIONS (6)
  - Arthralgia [None]
  - Hypokinesia [None]
  - Hypersomnia [None]
  - Fatigue [None]
  - Discomfort [None]
  - Dysstasia [None]

NARRATIVE: CASE EVENT DATE: 20190901
